FAERS Safety Report 19068088 (Version 1)
Quarter: 2021Q1

REPORT INFORMATION
  Report Type: Spontaneous
  Country: US (occurrence: US)
  Receive Date: 20210329
  Receipt Date: 20210329
  Transmission Date: 20210420
  Serious: No
  Sender: FDA-Public Use
  Company Number: US-RECORDATI-2021000122

PATIENT

DRUGS (1)
  1. ISTURISA [Suspect]
     Active Substance: OSILODROSTAT PHOSPHATE
     Indication: PRODUCT USED FOR UNKNOWN INDICATION
     Dosage: 3MG TWICE DAILY
     Dates: start: 20201228

REACTIONS (4)
  - Nausea [Unknown]
  - Headache [Unknown]
  - Abdominal discomfort [Unknown]
  - Fatigue [Unknown]
